FAERS Safety Report 8966227 (Version 1)
Quarter: 2012Q4

REPORT INFORMATION
  Report Type: 
  Country: IT (occurrence: IT)
  Receive Date: 20121214
  Receipt Date: 20121214
  Transmission Date: 20130627
  Serious: Yes (Hospitalization)
  Sender: FDA-Public Use
  Company Number: IT-TEVA-374916ISR

PATIENT
  Age: 61 Year
  Sex: Male

DRUGS (3)
  1. TICLOPIDINE [Suspect]
     Dosage: 250 Milligram Daily;
     Route: 048
     Dates: start: 20110505, end: 20120926
  2. COAPROVEL [Concomitant]
     Route: 048
  3. ZETIA [Concomitant]

REACTIONS (6)
  - Subdural haematoma [Recovering/Resolving]
  - Headache [Recovering/Resolving]
  - Aphasia [Recovering/Resolving]
  - Paraesthesia [Recovering/Resolving]
  - Paraesthesia [Recovering/Resolving]
  - Epilepsy [Recovering/Resolving]
